FAERS Safety Report 11616357 (Version 1)
Quarter: 2015Q4

REPORT INFORMATION
  Report Type: Spontaneous
  Country: US (occurrence: US)
  Receive Date: 20151009
  Receipt Date: 20151009
  Transmission Date: 20160304
  Serious: No
  Sender: FDA-Public Use
  Company Number: US-BAYER-2015-434096

PATIENT
  Age: 67 Year
  Sex: Female
  Weight: 65.76 kg

DRUGS (4)
  1. MIRALAX [Suspect]
     Active Substance: POLYETHYLENE GLYCOL 3350
     Indication: ABDOMINAL PAIN UPPER
     Route: 048
  2. ONE A DAY [Concomitant]
  3. CITRACAL [Concomitant]
     Active Substance: CALCIUM CITRATE
  4. GLUCOSAMINE W/CHONDROITIN SULFATE [Concomitant]
     Active Substance: CHONDROITIN SULFATE (BOVINE)\GLUCOSAMINE SULFATE

REACTIONS (5)
  - Product use issue [None]
  - Product use issue [Unknown]
  - Flatulence [Not Recovered/Not Resolved]
  - Abdominal pain upper [Not Recovered/Not Resolved]
  - Nausea [Not Recovered/Not Resolved]
